FAERS Safety Report 17804356 (Version 1)
Quarter: 2020Q2

REPORT INFORMATION
  Report Type: Spontaneous
  Country: MY (occurrence: MY)
  Receive Date: 20200519
  Receipt Date: 20200519
  Transmission Date: 20200714
  Serious: Yes (Death, Hospitalization)
  Sender: FDA-Public Use
  Company Number: MY-AMNEAL PHARMACEUTICALS-2020-AMRX-01421

PATIENT
  Age: 96 Year
  Sex: Male

DRUGS (2)
  1. AMLODIPINE BESYLATE. [Suspect]
     Active Substance: AMLODIPINE BESYLATE
     Indication: HYPERTENSION
     Dosage: UNK
     Route: 065
  2. BISOPROLOL [Suspect]
     Active Substance: BISOPROLOL
     Indication: HYPERTENSION
     Dosage: 1.25 MILLIGRAM
     Route: 065

REACTIONS (4)
  - Hypotension [Not Recovered/Not Resolved]
  - Accidental overdose [Fatal]
  - Dizziness [Unknown]
  - Sinus bradycardia [Unknown]
